FAERS Safety Report 6131403-5 (Version None)
Quarter: 2009Q1

REPORT INFORMATION
  Report Type: 
  Country: None (occurrence: None)
  Receive Date: 20090325
  Receipt Date: 20080609
  Transmission Date: 20090719
  Serious: Yes (Other)
  Sender: FDA-Public Use
  Company Number: US-BRISTOL-MYERS SQUIBB COMPANY-14191746

PATIENT
  Age: 71 Year
  Sex: Male

DRUGS (7)
  1. ERBITUX [Suspect]
     Indication: COLON CANCER METASTATIC
     Dosage: LOADING DOSE - 400 MG/M2;GIVEN 250MG/M2 ON 19MAY08
     Route: 042
     Dates: start: 20080512
  2. BENADRYL [Concomitant]
     Indication: PREMEDICATION
     Dosage: GIVEN PRIOR TO ERBITUX
     Route: 042
  3. ALOXI [Concomitant]
  4. DECADRON [Concomitant]
     Route: 042
  5. LEUCOVORIN CALCIUM [Concomitant]
  6. FLUOROURACIL [Concomitant]
  7. CORTEF [Concomitant]
     Indication: PREMEDICATION

REACTIONS (2)
  - CHEST DISCOMFORT [None]
  - DYSPNOEA [None]
